FAERS Safety Report 25394426 (Version 1)
Quarter: 2025Q2

REPORT INFORMATION
  Report Type: Spontaneous
  Country: ES (occurrence: ES)
  Receive Date: 20250604
  Receipt Date: 20250604
  Transmission Date: 20250717
  Serious: Yes (Other)
  Sender: BOEHRINGER INGELHEIM
  Company Number: None

PATIENT
  Age: 92 Year
  Sex: Female

DRUGS (2)
  1. JARDIANCE [Suspect]
     Active Substance: EMPAGLIFLOZIN
     Indication: Diabetes mellitus
     Route: 048
     Dates: start: 20240124, end: 20250407
  2. MOVICOL 13,8 G POLVO PARA SOLUCION ORAL EN SOBRE, 20 sobres [Concomitant]
     Indication: Constipation
     Route: 048
     Dates: start: 20250319

REACTIONS (1)
  - Fungal skin infection [Recovering/Resolving]

NARRATIVE: CASE EVENT DATE: 20250414
